FAERS Safety Report 18265047 (Version 2)
Quarter: 2020Q4

REPORT INFORMATION
  Report Type: Report from Study
  Country: None (occurrence: US)
  Receive Date: 20200915
  Receipt Date: 20201028
  Transmission Date: 20210113
  Serious: Yes (Other)
  Sender: FDA-Public Use
  Company Number: US-ABBVIE-20K-163-3563119-00

PATIENT
  Sex: Female

DRUGS (8)
  1. SIMBRINZA [Concomitant]
     Active Substance: BRIMONIDINE TARTRATE\BRINZOLAMIDE
     Indication: UVEITIS
     Route: 065
  2. RHOPRESSA [Concomitant]
     Active Substance: NETARSUDIL MESYLATE
     Indication: UVEITIS
     Route: 065
  3. HUMIRA [Suspect]
     Active Substance: ADALIMUMAB
     Indication: UVEITIS
     Route: 058
     Dates: start: 20191101
  4. BROMOLITE [Concomitant]
     Indication: UVEITIS
  5. PREDNISONE. [Concomitant]
     Active Substance: PREDNISONE
     Indication: PRODUCT USED FOR UNKNOWN INDICATION
  6. BETIMOL [Concomitant]
     Active Substance: TIMOLOL
     Indication: UVEITIS
     Route: 065
  7. ANORO [Concomitant]
     Active Substance: UMECLIDINIUM BROMIDE\VILANTEROL TRIFENATATE
     Indication: ASTHMA
  8. DIAMOX SEQUELS [Concomitant]
     Active Substance: ACETAZOLAMIDE
     Indication: UVEITIS
     Route: 065

REACTIONS (2)
  - Lip dry [Unknown]
  - Intraocular pressure test abnormal [Recovering/Resolving]
